FAERS Safety Report 6801819-X (Version None)
Quarter: 2010Q2

REPORT INFORMATION
  Report Type: 
  Country: None (occurrence: None)
  Receive Date: 20100629
  Receipt Date: 20100617
  Transmission Date: 20101027
  Serious: No
  Sender: FDA-Public Use
  Company Number: US-B.I. PHARMACEUTICALS,INC./RIDGEFIELD-2010-BP-06908BP

PATIENT
  Age: 78 Year
  Sex: Male

DRUGS (16)
  1. SPIRIVA [Suspect]
     Indication: BRONCHIECTASIS
     Dosage: 18 MCG
     Route: 055
     Dates: start: 20040101
  2. SPIRIVA [Suspect]
     Indication: ASTHMA
  3. AZITHROMYCIN [Suspect]
     Indication: BRONCHIECTASIS
     Dates: start: 20100401
  4. AZITHROMYCIN [Suspect]
     Indication: ASTHMA
  5. PROVENTIL [Concomitant]
     Indication: BRONCHIECTASIS
  6. PROVENTIL [Concomitant]
     Indication: ASTHMA
  7. ADVAIR DISKUS 100/50 [Concomitant]
     Indication: BRONCHIECTASIS
  8. ADVAIR DISKUS 100/50 [Concomitant]
     Indication: ASTHMA
  9. COLACE [Concomitant]
     Indication: CONSTIPATION
  10. ASPIRIN [Concomitant]
     Indication: PROPHYLAXIS
  11. RANITIDINE [Concomitant]
     Indication: HIATUS HERNIA
  12. MUCINEX [Concomitant]
     Indication: BRONCHIECTASIS
  13. MUCINEX [Concomitant]
     Indication: ASTHMA
  14. TIKOSYN [Concomitant]
     Indication: ATRIAL FIBRILLATION
  15. CELEBREX [Concomitant]
     Indication: ARTHRITIS
  16. ULTRAM [Concomitant]
     Indication: ARTHRITIS

REACTIONS (3)
  - DYSURIA [None]
  - URINE FLOW DECREASED [None]
  - VISUAL IMPAIRMENT [None]
